FAERS Safety Report 16756940 (Version 3)
Quarter: 2019Q4

REPORT INFORMATION
  Report Type: Report from Study
  Country: ES (occurrence: ES)
  Receive Date: 20190829
  Receipt Date: 20191031
  Transmission Date: 20200122
  Serious: Yes (Hospitalization, Other)
  Sender: FDA-Public Use
  Company Number: ES-JNJFOC-20190836503

PATIENT
  Age: 83 Year
  Sex: Female
  Weight: 55 kg

DRUGS (17)
  1. VILDAGLIPTIN [Concomitant]
     Active Substance: VILDAGLIPTIN
     Dates: start: 20141201
  2. FUROSEMIDE. [Concomitant]
     Active Substance: FUROSEMIDE
     Dates: start: 20190813
  3. ALEUDRINA [Concomitant]
     Dates: start: 20190601, end: 20190604
  4. FORMOTEROL [Concomitant]
     Active Substance: FORMOTEROL
     Dates: start: 20150527
  5. DIGOXIN. [Concomitant]
     Active Substance: DIGOXIN
     Dates: start: 20190216, end: 20190531
  6. HYDROCHLOROTHIAZIDE. [Concomitant]
     Active Substance: HYDROCHLOROTHIAZIDE
     Route: 065
     Dates: start: 20141201
  7. NEBIVOLOL. [Concomitant]
     Active Substance: NEBIVOLOL
     Route: 065
     Dates: start: 20141201, end: 20190531
  8. LORAZEPAM. [Concomitant]
     Active Substance: LORAZEPAM
     Route: 065
     Dates: start: 20181210
  9. TIAMAZOL [Concomitant]
     Active Substance: METHIMAZOLE
     Route: 065
     Dates: start: 20180831
  10. EPROSARTAN [Concomitant]
     Active Substance: EPROSARTAN
     Route: 065
     Dates: start: 20140211
  11. FERROUS SULFATE. [Concomitant]
     Active Substance: FERROUS SULFATE
     Route: 065
     Dates: start: 20160401
  12. FUROSEMIDE. [Concomitant]
     Active Substance: FUROSEMIDE
     Dates: start: 20190605, end: 20190813
  13. RIVAROXABAN [Suspect]
     Active Substance: RIVAROXABAN
     Indication: ATRIAL FIBRILLATION
     Route: 048
     Dates: start: 20141028
  14. SERTRALINE [Concomitant]
     Active Substance: SERTRALINE HYDROCHLORIDE
     Route: 065
     Dates: start: 20120411
  15. FUROSEMIDE. [Concomitant]
     Active Substance: FUROSEMIDE
     Dates: start: 20181018, end: 20190601
  16. FUROSEMIDE. [Concomitant]
     Active Substance: FUROSEMIDE
     Dates: start: 20190601, end: 20190605
  17. BUDESONIDE. [Concomitant]
     Active Substance: BUDESONIDE
     Dates: start: 20150527

REACTIONS (4)
  - Bleeding varicose vein [Recovered/Resolved]
  - Atrioventricular block [Recovered/Resolved]
  - Iron deficiency anaemia [Recovered/Resolved]
  - Epistaxis [Recovered/Resolved]

NARRATIVE: CASE EVENT DATE: 20190514
